FAERS Safety Report 5636620-6 (Version None)
Quarter: 2008Q1

REPORT INFORMATION
  Report Type: 
  Country: None (occurrence: None)
  Receive Date: 20080219
  Receipt Date: 20080219
  Transmission Date: 20080703
  Serious: No
  Sender: FDA-Public Use
  Company Number: None

PATIENT
  Age: 39 Year
  Sex: Female
  Weight: 54.4316 kg

DRUGS (2)
  1. ICY HOT CREAM [Suspect]
     Indication: ARTHRALGIA
     Dates: start: 20070101, end: 20070101
  2. ICY HOT CREAM [Suspect]
     Indication: PAIN IN EXTREMITY
     Dates: start: 20070101, end: 20070101

REACTIONS (3)
  - BLISTER [None]
  - BURNING SENSATION [None]
  - PARAESTHESIA [None]
